FAERS Safety Report 10649508 (Version 2)
Quarter: 2014Q4

REPORT INFORMATION
  Report Type: Spontaneous
  Country: JP (occurrence: JP)
  Receive Date: 20141212
  Receipt Date: 20141229
  Transmission Date: 20150529
  Serious: Yes (Death, Other)
  Sender: FDA-Public Use
  Company Number: JP-BAYER-2014-182152

PATIENT
  Sex: Female

DRUGS (1)
  1. NEXAVAR [Suspect]
     Active Substance: SORAFENIB
     Indication: RENAL CELL CARCINOMA
     Dosage: DAILY DOSE 800 MG
     Route: 048
     Dates: start: 20121003

REACTIONS (4)
  - Haemothorax [Fatal]
  - Infectious pleural effusion [None]
  - Bronchial obstruction [None]
  - Oesophagobronchial fistula [None]

NARRATIVE: CASE EVENT DATE: 201210
